FAERS Safety Report 20021654 (Version 1)
Quarter: 2021Q4

REPORT INFORMATION
  Report Type: Report from Study
  Country: CA (occurrence: CA)
  Receive Date: 20211101
  Receipt Date: 20211101
  Transmission Date: 20220303
  Serious: Yes (Hospitalization, Other)
  Sender: FDA-Public Use
  Company Number: CA-BIOGEN-2021BI01062404

PATIENT
  Age: 57 Year
  Sex: Male

DRUGS (2)
  1. DALFAMPRIDINE [Suspect]
     Active Substance: DALFAMPRIDINE
     Indication: Multiple sclerosis
     Route: 048
     Dates: start: 20130819
  2. PFIZER-BIONTECH COVID-19 VACCINE [Suspect]
     Active Substance: TOZINAMERAN
     Indication: COVID-19 prophylaxis
     Route: 065

REACTIONS (16)
  - Thrombosis [Unknown]
  - Lymphoma [Unknown]
  - Haemoglobin decreased [Unknown]
  - Blood iron decreased [Unknown]
  - Vaccination complication [Unknown]
  - Tinnitus [Unknown]
  - Decreased immune responsiveness [Unknown]
  - Chills [Unknown]
  - Feeding disorder [Unknown]
  - Pyrexia [Unknown]
  - Weight decreased [Unknown]
  - Hyperhidrosis [Unknown]
  - Neck pain [Unknown]
  - Hunger [Unknown]
  - Drug ineffective [Unknown]
  - Back pain [Unknown]

NARRATIVE: CASE EVENT DATE: 20210401
